FAERS Safety Report 5758853-0 (Version None)
Quarter: 2008Q2

REPORT INFORMATION
  Report Type: 
  Country: None (occurrence: None)
  Receive Date: 20080604
  Receipt Date: 20080513
  Transmission Date: 20081010
  Serious: Yes (Hospitalization)
  Sender: FDA-Public Use
  Company Number: TR-ELI_LILLY_AND_COMPANY-TR200805005520

PATIENT
  Sex: Male

DRUGS (5)
  1. HUMALOG MIX 75/25 [Suspect]
     Indication: DIABETES MELLITUS
     Dosage: UNK, UNKNOWN
     Route: 058
     Dates: start: 20060101
  2. MONODUR [Concomitant]
     Indication: CARDIAC DISORDER
     Dosage: 60 MG, DAILY (1/D)
     Route: 048
     Dates: start: 20060101
  3. CORASPIN [Concomitant]
     Indication: CARDIAC DISORDER
     Dosage: UNK, DAILY (1/D)
     Route: 048
     Dates: start: 20060101
  4. DESAL [Concomitant]
     Indication: PULMONARY OEDEMA
     Dosage: 40 MG, DAILY (1/D)
     Route: 048
     Dates: start: 20060101
  5. ALDACTAZIDE [Concomitant]
     Dosage: UNK, DAILY (1/D)
     Route: 065
     Dates: start: 20060101

REACTIONS (3)
  - CARDIAC DISORDER [None]
  - MYALGIA [None]
  - PULMONARY OEDEMA [None]
